FAERS Safety Report 15987756 (Version 1)
Quarter: 2019Q1

REPORT INFORMATION
  Report Type: Report from Study
  Country: ES (occurrence: ES)
  Receive Date: 20190220
  Receipt Date: 20190220
  Transmission Date: 20190418
  Serious: Yes (Hospitalization)
  Sender: FDA-Public Use
  Company Number: ES-ELI_LILLY_AND_COMPANY-ES201902006238

PATIENT
  Age: 64 Year
  Sex: Male

DRUGS (6)
  1. VENTOLIN SALBUTAMOL [Concomitant]
     Indication: BRONCHIAL DISORDER
     Dosage: UNK
  2. CALCIUM [Concomitant]
     Active Substance: CALCIUM
     Indication: OSTEOPOROSIS
     Dosage: UNK
  3. TERIPARATIDE [Suspect]
     Active Substance: TERIPARATIDE
     Indication: OSTEOPOROSIS
     Dosage: 20 UG, DAILY
     Route: 058
     Dates: start: 20181127
  4. SPIRIVA [Concomitant]
     Active Substance: TIOTROPIUM BROMIDE MONOHYDRATE
     Indication: BRONCHIAL DISORDER
     Dosage: UNK
  5. FOSTER PIROXICAM [Concomitant]
     Indication: BRONCHIAL DISORDER
     Dosage: UNK
  6. ENALAPRIL [Concomitant]
     Active Substance: ENALAPRIL
     Indication: OSTEOPOROSIS
     Dosage: UNK

REACTIONS (4)
  - Gastric ulcer [Unknown]
  - Anaemia [Unknown]
  - Melaena [Unknown]
  - Femur fracture [Not Recovered/Not Resolved]

NARRATIVE: CASE EVENT DATE: 201901
